FAERS Safety Report 20194505 (Version 2)
Quarter: 2022Q3

REPORT INFORMATION
  Report Type: Spontaneous
  Country: US (occurrence: None)
  Receive Date: 20211216
  Receipt Date: 20220804
  Transmission Date: 20221027
  Serious: Yes (Disabling, Other)
  Sender: FDA-Public Use
  Company Number: 2021A863905

PATIENT
  Age: 38 Year
  Sex: Male
  Weight: 90.7 kg

DRUGS (27)
  1. PRILOSEC [Suspect]
     Active Substance: OMEPRAZOLE MAGNESIUM
     Indication: Gastrooesophageal reflux disease
     Route: 048
     Dates: start: 2010, end: 2013
  2. PRILOSEC [Suspect]
     Active Substance: OMEPRAZOLE MAGNESIUM
     Indication: Gastrooesophageal reflux disease
     Route: 048
     Dates: start: 20100101, end: 20131130
  3. PRILOSEC OTC [Suspect]
     Active Substance: OMEPRAZOLE MAGNESIUM
     Indication: Gastrooesophageal reflux disease
     Route: 048
     Dates: start: 2010, end: 2013
  4. PRILOSEC OTC [Suspect]
     Active Substance: OMEPRAZOLE MAGNESIUM
     Indication: Gastrooesophageal reflux disease
     Route: 048
     Dates: start: 20100101, end: 20131130
  5. PANTOPRAZOLE [Suspect]
     Active Substance: PANTOPRAZOLE
     Indication: Gastrooesophageal reflux disease
     Route: 065
     Dates: start: 2014
  6. PANTOPRAZOLE [Suspect]
     Active Substance: PANTOPRAZOLE
     Indication: Gastrooesophageal reflux disease
     Route: 065
     Dates: start: 20140306
  7. LOSARTAN [Concomitant]
     Active Substance: LOSARTAN
     Indication: Blood pressure measurement
     Route: 065
     Dates: start: 2017, end: 2020
  8. AMOXICILLIN [Concomitant]
     Active Substance: AMOXICILLIN
     Indication: Infection
     Route: 065
     Dates: start: 2019
  9. HYDRALAZINE [Concomitant]
     Active Substance: HYDRALAZINE HYDROCHLORIDE
     Indication: Blood pressure measurement
     Route: 065
     Dates: start: 2017, end: 2020
  10. HYDROCHLOROTHIAZIDE [Concomitant]
     Active Substance: HYDROCHLOROTHIAZIDE
     Indication: Polyuria
     Route: 065
     Dates: start: 2014
  11. ACETAMINOPHEN [Concomitant]
     Active Substance: ACETAMINOPHEN
     Indication: Pain
     Route: 065
  12. ASPIRIN [Concomitant]
     Active Substance: ASPIRIN
     Indication: Pain
     Route: 065
  13. FAMOTIDINE [Concomitant]
     Active Substance: FAMOTIDINE
  14. CEFAZOLIN [Concomitant]
     Active Substance: CEFAZOLIN
  15. LIDOCAINE [Concomitant]
     Active Substance: LIDOCAINE
  16. NITROGLYCERIN [Concomitant]
     Active Substance: NITROGLYCERIN
  17. LISINOPRIL [Concomitant]
     Active Substance: LISINOPRIL
  18. AMLODIPINE [Concomitant]
     Active Substance: AMLODIPINE BESYLATE
  19. PROMETHAZINE [Concomitant]
     Active Substance: PROMETHAZINE HYDROCHLORIDE
  20. ONDANSETRON [Concomitant]
     Active Substance: ONDANSETRON
  21. CLONIDINE [Concomitant]
     Active Substance: CLONIDINE
  22. HEPARIN [Concomitant]
     Active Substance: HEPARIN SODIUM
  23. POTASSIUM CHLORIDE [Concomitant]
     Active Substance: POTASSIUM CHLORIDE
  24. OXYCODONE [Concomitant]
     Active Substance: OXYCODONE
  25. TELMESARTAN [Concomitant]
  26. SEVELAMER [Concomitant]
     Active Substance: SEVELAMER
  27. RENAL VITAMIN [Concomitant]

REACTIONS (5)
  - Acute kidney injury [Not Recovered/Not Resolved]
  - Chronic kidney disease [Not Recovered/Not Resolved]
  - End stage renal disease [Not Recovered/Not Resolved]
  - Renal failure [Unknown]
  - Chronic kidney disease-mineral and bone disorder [Unknown]

NARRATIVE: CASE EVENT DATE: 20130101
